FAERS Safety Report 25389464 (Version 2)
Quarter: 2025Q2

REPORT INFORMATION
  Report Type: Other
  Country: CN (occurrence: CN)
  Receive Date: 20250603
  Receipt Date: 20250606
  Transmission Date: 20250717
  Serious: Yes (Hospitalization, Other)
  Sender: APPCO PHARMA LLC
  Company Number: CN-Appco Pharma LLC-2177962

PATIENT
  Age: 17 Year
  Sex: Female

DRUGS (4)
  1. FLUOXETINE [Suspect]
     Active Substance: FLUOXETINE HYDROCHLORIDE
     Indication: Depression
  2. BUPROPION [Suspect]
     Active Substance: BUPROPION
  3. QUETIAPINE FUMARATE [Suspect]
     Active Substance: QUETIAPINE FUMARATE
  4. TANDOSPIRONE [Suspect]
     Active Substance: TANDOSPIRONE

REACTIONS (2)
  - Drug interaction [Unknown]
  - Serotonin syndrome [Unknown]
